FAERS Safety Report 7442813-8 (Version None)
Quarter: 2011Q2

REPORT INFORMATION
  Report Type: 
  Country: None (occurrence: None)
  Receive Date: 20110425
  Receipt Date: 20110425
  Transmission Date: 20111010
  Serious: Yes (Hospitalization)
  Sender: FDA-Public Use
  Company Number: None

PATIENT
  Age: 69 Year
  Sex: Female

DRUGS (14)
  1. OXYCODONE [Concomitant]
  2. TORSEMIDE [Concomitant]
  3. ACETAMINOPHEN [Concomitant]
  4. POTASSIUM CHLORIDE [Concomitant]
  5. VELCADE [Suspect]
     Indication: MULTIPLE MYELOMA
     Dosage: 2.8MG D# 1,4,8,11 021DAY IV
     Route: 042
     Dates: start: 20110407, end: 20110407
  6. VELCADE [Suspect]
     Indication: MULTIPLE MYELOMA
     Dosage: 2.8MG D# 1,4,8,11 021DAY IV
     Route: 042
     Dates: start: 20110404, end: 20110404
  7. BISACODYL [Concomitant]
  8. MAGNESIUM HYDROXIDE [Concomitant]
  9. SIMVASTATIN [Concomitant]
  10. POLYETHYLENE GLYCOL [Concomitant]
  11. D5NS [Concomitant]
  12. PANTOPRAZOLE [Concomitant]
  13. LOVENOX [Concomitant]
  14. WARFARIN SODIUM [Concomitant]

REACTIONS (2)
  - VENTRICULAR TACHYCARDIA [None]
  - VENTRICULAR FIBRILLATION [None]
